FAERS Safety Report 20742899 (Version 3)
Quarter: 2022Q3

REPORT INFORMATION
  Report Type: Report from Study
  Country: NL (occurrence: NL)
  Receive Date: 20220425
  Receipt Date: 20220725
  Transmission Date: 20221027
  Serious: Yes (Hospitalization, Other)
  Sender: FDA-Public Use
  Company Number: NL-ABBVIE-21K-114-4037363-00

PATIENT
  Sex: Male

DRUGS (8)
  1. CARBIDOPA\LEVODOPA [Suspect]
     Active Substance: CARBIDOPA\LEVODOPA
     Indication: Parkinson^s disease
     Route: 050
     Dates: start: 20200511
  2. CARBIDOPA\LEVODOPA [Suspect]
     Active Substance: CARBIDOPA\LEVODOPA
     Dosage: MD: 19.0ML; CD: 5.1ML/H; ED:6.0 ML
     Route: 050
  3. CARBIDOPA\LEVODOPA [Concomitant]
     Active Substance: CARBIDOPA\LEVODOPA
     Indication: Parkinson^s disease
     Dosage: FORM STRENGTH: 100/25 MG, UNIT DOSE: 3
  4. CARBIDOPA\LEVODOPA [Concomitant]
     Active Substance: CARBIDOPA\LEVODOPA
     Dosage: FORM STRENGTH: 100/25 MG, UNIT DOSE: 1
  5. TAMSULOSIN [Concomitant]
     Active Substance: TAMSULOSIN
     Indication: Micturition disorder
  6. QUETIAPINE [Concomitant]
     Active Substance: QUETIAPINE
     Indication: Parkinson^s disease
     Dosage: ONCE A DAY FOR THE NIGHT
  7. TRANXENE [Concomitant]
     Active Substance: CLORAZEPATE DIPOTASSIUM
     Indication: Anxiety disorder
  8. IMIPRAMINE [Concomitant]
     Active Substance: IMIPRAMINE
     Indication: Antidepressant therapy

REACTIONS (20)
  - Feeding disorder [Not Recovered/Not Resolved]
  - Fluid intake reduced [Not Recovered/Not Resolved]
  - Asthenia [Not Recovered/Not Resolved]
  - Renal impairment [Recovering/Resolving]
  - Haemoglobin decreased [Recovering/Resolving]
  - Mobility decreased [Not Recovered/Not Resolved]
  - Nocturia [Recovered/Resolved]
  - Muscle rigidity [Unknown]
  - Fatigue [Not Recovered/Not Resolved]
  - Cognitive disorder [Not Recovered/Not Resolved]
  - Dyskinesia [Unknown]
  - Muscle spasms [Not Recovered/Not Resolved]
  - Tremor [Unknown]
  - Underweight [Recovered/Resolved]
  - Restlessness [Unknown]
  - Abnormal dreams [Unknown]
  - Unevaluable event [Recovered/Resolved]
  - On and off phenomenon [Not Recovered/Not Resolved]
  - Device kink [Unknown]
  - Device issue [Unknown]

NARRATIVE: CASE EVENT DATE: 20210101
